FAERS Safety Report 16107489 (Version 1)
Quarter: 2019Q1

REPORT INFORMATION
  Report Type: Spontaneous
  Country: GB (occurrence: GB)
  Receive Date: 20190322
  Receipt Date: 20190322
  Transmission Date: 20190418
  Serious: Yes (Hospitalization)
  Sender: FDA-Public Use
  Company Number: GB-MYLANLABS-2019M1026453

PATIENT
  Age: 56 Year
  Sex: Female

DRUGS (10)
  1. LANSOPRAZOLE. [Suspect]
     Active Substance: LANSOPRAZOLE
     Indication: PRODUCT USED FOR UNKNOWN INDICATION
     Dosage: 15 MILLIGRAM, QD
     Route: 048
  2. FLUOXETINE [Suspect]
     Active Substance: FLUOXETINE HYDROCHLORIDE
     Indication: DEPRESSION
     Dosage: 20 MILLIGRAM, QD
     Route: 048
  3. QUETIAPINE. [Concomitant]
     Active Substance: QUETIAPINE
     Dosage: UNK
  4. METOCLOPRAMIDE HYDROCHLORIDE. [Concomitant]
     Active Substance: METOCLOPRAMIDE HYDROCHLORIDE
  5. FOLIC ACID. [Concomitant]
     Active Substance: FOLIC ACID
  6. PARACETAMOL [Concomitant]
     Active Substance: ACETAMINOPHEN
  7. SERTRALINE HYDROCHLORIDE. [Concomitant]
     Active Substance: SERTRALINE HYDROCHLORIDE
  8. CLOPIDOGREL [Concomitant]
     Active Substance: CLOPIDOGREL BISULFATE
  9. COLECALCIFEROL [Concomitant]
     Active Substance: CHOLECALCIFEROL
  10. ZIMOVANE [Concomitant]
     Active Substance: ZOPICLONE

REACTIONS (1)
  - Blood sodium decreased [Unknown]
